FAERS Safety Report 23255567 (Version 1)
Quarter: 2023Q4

REPORT INFORMATION
  Report Type: Spontaneous
  Country: US (occurrence: US)
  Receive Date: 20231203
  Receipt Date: 20231203
  Transmission Date: 20240110
  Serious: No
  Sender: FDA-Public Use
  Company Number: US-BAUSCHBL-2023BNL012198

PATIENT
  Sex: Female

DRUGS (1)
  1. MIEBO [Suspect]
     Active Substance: PERFLUOROHEXYLOCTANE
     Indication: Product used for unknown indication
     Dosage: FOUR DOSES
     Route: 065
     Dates: start: 20231103, end: 20231103

REACTIONS (2)
  - Conjunctival cyst [Unknown]
  - Eye irritation [Unknown]

NARRATIVE: CASE EVENT DATE: 20231103
